FAERS Safety Report 10262050 (Version 12)
Quarter: 2015Q1

REPORT INFORMATION
  Report Type: Report from Study
  Country: TH (occurrence: TH)
  Receive Date: 20140626
  Receipt Date: 20150130
  Transmission Date: 20150720
  Serious: Yes (Hospitalization)
  Sender: FDA-Public Use
  Company Number: PHHO2014TH006734

PATIENT
  Age: 69 Year
  Sex: Female
  Weight: 55.9 kg

DRUGS (4)
  1. LDK378 [Suspect]
     Active Substance: CERITINIB
     Indication: NON-SMALL CELL LUNG CANCER
     Dosage: 750 MG, QD
     Route: 048
     Dates: start: 20140418, end: 20140501
  2. LDK378 [Suspect]
     Active Substance: CERITINIB
     Dosage: 600 MG, QD
     Route: 048
     Dates: start: 20140704, end: 20140722
  3. DEXAMETHASONE. [Suspect]
     Active Substance: DEXAMETHASONE
     Indication: METASTASES TO CENTRAL NERVOUS SYSTEM
     Dosage: 0.5 MG, QD (STAT)
     Route: 065
     Dates: start: 20140320, end: 20140502
  4. KCL [Concomitant]
     Active Substance: POTASSIUM CHLORIDE
     Indication: HYPOKALAEMIA
     Dosage: 30 ML, STAT
     Route: 048
     Dates: start: 20140913, end: 20140913

REACTIONS (5)
  - Pneumonia [Recovered/Resolved]
  - Escherichia urinary tract infection [Recovered/Resolved]
  - Amoebic dysentery [Recovered/Resolved]
  - Salmonella sepsis [Recovered/Resolved]
  - Altered state of consciousness [Recovered/Resolved]

NARRATIVE: CASE EVENT DATE: 20140503
